FAERS Safety Report 8998299 (Version 1)
Quarter: 2013Q1

REPORT INFORMATION
  Report Type: Spontaneous
  Country: US (occurrence: US)
  Receive Date: 20130104
  Receipt Date: 20130104
  Transmission Date: 20140127
  Serious: Yes (Other)
  Sender: FDA-Public Use
  Company Number: PHEH2013US000520

PATIENT
  Sex: Female

DRUGS (4)
  1. SANDOSTATIN LAR DEPOT [Suspect]
  2. LORTAB [Concomitant]
  3. PERCOCET [Concomitant]
  4. MORPHINE [Concomitant]

REACTIONS (1)
  - Cyst [Unknown]
